FAERS Safety Report 21802787 (Version 1)
Quarter: 2022Q4

REPORT INFORMATION
  Report Type: Spontaneous
  Country: US (occurrence: US)
  Receive Date: 20221231
  Receipt Date: 20221231
  Transmission Date: 20230112
  Serious: No
  Sender: FDA-Public Use
  Company Number: US-ELI_LILLY_AND_COMPANY-US202212013339

PATIENT
  Age: 49 Year
  Sex: Female

DRUGS (3)
  1. TALTZ [Suspect]
     Active Substance: IXEKIZUMAB
     Indication: Psoriatic arthropathy
     Dosage: 80 MG, UNKNOWN
     Route: 058
     Dates: start: 202210
  2. TALTZ [Suspect]
     Active Substance: IXEKIZUMAB
     Indication: Arthritis
  3. MOUNJARO [Suspect]
     Active Substance: TIRZEPATIDE
     Indication: Glucose tolerance impaired
     Dosage: 2.5 MG, UNKNOWN
     Route: 065
     Dates: start: 202211

REACTIONS (7)
  - Body mass index increased [Recovering/Resolving]
  - Immunosuppression [Unknown]
  - Low density lipoprotein increased [Recovering/Resolving]
  - Weight increased [Recovering/Resolving]
  - Blood glucose abnormal [Unknown]
  - Metabolic disorder [Recovering/Resolving]
  - Off label use [Unknown]

NARRATIVE: CASE EVENT DATE: 20221101
